FAERS Safety Report 20596630 (Version 11)
Quarter: 2025Q2

REPORT INFORMATION
  Report Type: Report from Study
  Country: US (occurrence: US)
  Receive Date: 20220315
  Receipt Date: 20250430
  Transmission Date: 20250717
  Serious: Yes (Other)
  Sender: TAKEDA
  Company Number: US-TAKEDA-2022TUS017180

PATIENT
  Sex: Female
  Weight: 86 kg

DRUGS (19)
  1. PONATINIB [Suspect]
     Active Substance: PONATINIB
     Indication: Acute lymphocytic leukaemia
     Dosage: 30 MILLIGRAM, QD
     Dates: start: 20220222
  2. PONATINIB [Suspect]
     Active Substance: PONATINIB
     Dosage: 15 MILLIGRAM, QD
     Dates: start: 20220223
  3. PONATINIB [Suspect]
     Active Substance: PONATINIB
     Dosage: 15 MILLIGRAM, QD
  4. PONATINIB [Suspect]
     Active Substance: PONATINIB
     Dosage: 15 MILLIGRAM, QD
  5. PONATINIB [Suspect]
     Active Substance: PONATINIB
     Dosage: 15 MILLIGRAM, QD
  6. PONATINIB [Suspect]
     Active Substance: PONATINIB
  7. FUROSEMIDE [Concomitant]
     Active Substance: FUROSEMIDE
  8. URSODIOL [Concomitant]
     Active Substance: URSODIOL
  9. OMEPRAZOLE [Concomitant]
     Active Substance: OMEPRAZOLE
  10. ALPRAZOLAM [Concomitant]
     Active Substance: ALPRAZOLAM
  11. ELIQUIS [Concomitant]
     Active Substance: APIXABAN
  12. POTASSIUM [Concomitant]
     Active Substance: POTASSIUM
  13. DILTIAZEM [Concomitant]
     Active Substance: DILTIAZEM
  14. LABETALOL HYDROCHLORIDE [Concomitant]
     Active Substance: LABETALOL HYDROCHLORIDE
  15. VITAMIN C [Concomitant]
     Active Substance: ASCORBIC ACID
  16. VITAMIN D3 [Concomitant]
     Active Substance: CHOLECALCIFEROL
  17. LOSARTAN POTASSIUM [Concomitant]
     Active Substance: LOSARTAN POTASSIUM
  18. HYDRALAZINE HCL [Concomitant]
     Active Substance: HYDRALAZINE HYDROCHLORIDE
  19. ATORVALIQ [Concomitant]
     Active Substance: ATORVASTATIN CALCIUM TRIHYDRATE

REACTIONS (16)
  - Acute lymphocytic leukaemia recurrent [Unknown]
  - Deafness [Unknown]
  - Blood pressure increased [Unknown]
  - Rash [Unknown]
  - Erythema [Recovering/Resolving]
  - Melanocytic naevus [Unknown]
  - Dysphonia [Unknown]
  - Tachycardia [Unknown]
  - Skin laceration [Unknown]
  - Illness [Unknown]
  - Rash papular [Unknown]
  - Ventricular extrasystoles [Unknown]
  - White blood cell count increased [Unknown]
  - Anxiety [Unknown]
  - Malaise [Unknown]
  - Dizziness [Unknown]
